FAERS Safety Report 15483342 (Version 1)
Quarter: 2018Q4

REPORT INFORMATION
  Report Type: Report from Study
  Country: US (occurrence: US)
  Receive Date: 20181010
  Receipt Date: 20181010
  Transmission Date: 20190205
  Serious: Yes (Other)
  Sender: FDA-Public Use
  Company Number: US-ASTELLAS-2018US043260

PATIENT
  Sex: Female

DRUGS (3)
  1. SOLIFENACIN [Suspect]
     Active Substance: SOLIFENACIN
     Indication: PRODUCT USED FOR UNKNOWN INDICATION
     Route: 048
     Dates: end: 2017
  2. SOLIFENACIN [Suspect]
     Active Substance: SOLIFENACIN
     Dosage: UNK UNK, UNKNOWN FREQ.
     Route: 048
  3. SOLIFENACIN [Suspect]
     Active Substance: SOLIFENACIN
     Indication: PRODUCT USED FOR UNKNOWN INDICATION
     Route: 065

REACTIONS (4)
  - Nervous system disorder [Unknown]
  - Drug intolerance [Unknown]
  - Drug ineffective [Unknown]
  - Hypersensitivity [Unknown]
